FAERS Safety Report 23509549 (Version 2)
Quarter: 2024Q1

REPORT INFORMATION
  Report Type: Report from Study
  Country: US (occurrence: US)
  Receive Date: 20240210
  Receipt Date: 20240221
  Transmission Date: 20240409
  Serious: Yes (Other)
  Sender: FDA-Public Use
  Company Number: US-ABBVIE-5629737

PATIENT
  Sex: Female

DRUGS (1)
  1. HUMIRA [Suspect]
     Active Substance: ADALIMUMAB
     Indication: Rheumatoid arthritis
     Dosage: CITRATE FREE
     Route: 058
     Dates: start: 20240131

REACTIONS (6)
  - Loss of consciousness [Recovered/Resolved]
  - Headache [Not Recovered/Not Resolved]
  - Fatigue [Recovered/Resolved]
  - Rhinorrhoea [Not Recovered/Not Resolved]
  - Dizziness [Unknown]
  - Fatigue [Recovered/Resolved]

NARRATIVE: CASE EVENT DATE: 20240101
